FAERS Safety Report 21532880 (Version 1)
Quarter: 2022Q4

REPORT INFORMATION
  Report Type: Spontaneous
  Country: US (occurrence: US)
  Receive Date: 20221101
  Receipt Date: 20221101
  Transmission Date: 20230112
  Serious: Yes (Hospitalization, Other)
  Sender: FDA-Public Use
  Company Number: US-MLMSERVICE-20221014-3863281-3

PATIENT
  Age: 12 Year
  Sex: Female
  Weight: 54.1 kg

DRUGS (6)
  1. KETAMINE HYDROCHLORIDE [Suspect]
     Active Substance: KETAMINE HYDROCHLORIDE
     Indication: Maintenance of anaesthesia
     Dosage: 483 MILLIGRAM,15-75 ?G?KG?1?MIN?1
     Route: 065
  2. METHADONE [Suspect]
     Active Substance: METHADONE HYDROCHLORIDE
     Indication: Induction of anaesthesia
     Dosage: 10 MILLIGRAM (0.2 MG/KG)
     Route: 042
  3. MIDAZOLAM [Suspect]
     Active Substance: MIDAZOLAM
     Indication: Product used for unknown indication
     Dosage: 2 MILLIGRAM,0.04 MG/KG
     Route: 042
  4. PROPOFOL [Suspect]
     Active Substance: PROPOFOL
     Indication: Maintenance of anaesthesia
     Dosage: 100 MILLIGRAM, TWO ADDITIONAL 50 MG BOLUSES
     Route: 065
  5. PROPOFOL [Suspect]
     Active Substance: PROPOFOL
     Indication: Induction of anaesthesia
     Dosage: 100 MILLIGRAM,1.85 MG/KG
     Route: 065
  6. PROPOFOL [Suspect]
     Active Substance: PROPOFOL
     Dosage: 2.24 MILLIGRAM,150-200 ?G?KG?1?MIN?1
     Route: 065

REACTIONS (4)
  - Respiratory depression [Recovering/Resolving]
  - Unresponsive to stimuli [Recovered/Resolved]
  - Miosis [Recovered/Resolved]
  - Depressed level of consciousness [Recovered/Resolved]
